FAERS Safety Report 11437116 (Version 1)
Quarter: 2015Q3

REPORT INFORMATION
  Report Type: Spontaneous
  Country: US (occurrence: US)
  Receive Date: 20150821
  Receipt Date: 20150821
  Transmission Date: 20151125
  Serious: Yes (Hospitalization)
  Sender: FDA-Public Use
  Company Number: US-ELI_LILLY_AND_COMPANY-US200703001052

PATIENT
  Sex: Female

DRUGS (15)
  1. LORTAB [Concomitant]
     Active Substance: ACETAMINOPHEN\HYDROCODONE BITARTRATE
     Dosage: UNK, AS NEEDED
  2. CYMBALTA [Suspect]
     Active Substance: DULOXETINE HYDROCHLORIDE
     Dosage: 30 MG, UNK
     Dates: start: 200701
  3. CYMBALTA [Suspect]
     Active Substance: DULOXETINE HYDROCHLORIDE
     Dosage: 60 MG, UNK
     Dates: end: 200702
  4. SEROQUEL [Concomitant]
     Active Substance: QUETIAPINE FUMARATE
  5. LIPITOR [Concomitant]
     Active Substance: ATORVASTATIN CALCIUM
  6. LOPRESSOR [Concomitant]
     Active Substance: METOPROLOL TARTRATE
  7. ESTRADIOL. [Concomitant]
     Active Substance: ESTRADIOL
  8. XANAX [Concomitant]
     Active Substance: ALPRAZOLAM
     Dosage: UNK, AS NEEDED
  9. LEVOXYL [Concomitant]
     Active Substance: LEVOTHYROXINE SODIUM
  10. CLONIDINE. [Concomitant]
     Active Substance: CLONIDINE
  11. NEXIUM [Concomitant]
     Active Substance: ESOMEPRAZOLE MAGNESIUM
  12. METHOTREXATE [Concomitant]
     Active Substance: METHOTREXATE
  13. COZAAR [Concomitant]
     Active Substance: LOSARTAN POTASSIUM
  14. RESTORIL [Concomitant]
     Active Substance: TEMAZEPAM
  15. FOLIC ACID. [Concomitant]
     Active Substance: FOLIC ACID

REACTIONS (1)
  - Blood sodium decreased [Recovered/Resolved]
